FAERS Safety Report 4955936-X (Version None)
Quarter: 2006Q1

REPORT INFORMATION
  Report Type: 
  Country: None (occurrence: None)
  Receive Date: 20060201
  Receipt Date: 20051028
  Transmission Date: 20060701
  Serious: No
  Sender: FDA-Public Use
  Company Number: FACT0500651

PATIENT
  Age: 80 Year
  Sex: Female
  Weight: 75.3 kg

DRUGS (3)
  1. FACTIVE [Suspect]
     Indication: RESPIRATORY TRACT INFECTION BACTERIAL
     Dosage: 320 MG, QD, ORAL
     Route: 048
     Dates: start: 20051021, end: 20051026
  2. KEFLEX [Suspect]
     Dates: start: 20050101, end: 20050101
  3. KEFLEX [Suspect]
     Dates: end: 20050101

REACTIONS (1)
  - RASH PAPULAR [None]
